FAERS Safety Report 7386181-9 (Version None)
Quarter: 2011Q1

REPORT INFORMATION
  Report Type: 
  Country: None (occurrence: None)
  Receive Date: 20110329
  Receipt Date: 20110329
  Transmission Date: 20110831
  Serious: Yes (Hospitalization, Disabling)
  Sender: FDA-Public Use
  Company Number: None

PATIENT
  Age: 6 Year
  Sex: Female
  Weight: 20.8655 kg

DRUGS (2)
  1. BANOPHEN MAJOR [Suspect]
     Indication: PRURITUS
     Dosage: 12.5 MG ONCE PO
     Route: 048
  2. BANOPHEN MAJOR [Suspect]
     Indication: SKIN DISORDER
     Dosage: 12.5 MG ONCE PO
     Route: 048

REACTIONS (4)
  - HALLUCINATION, VISUAL [None]
  - FEAR [None]
  - MIDDLE INSOMNIA [None]
  - PANIC REACTION [None]
